FAERS Safety Report 15896197 (Version 1)
Quarter: 2019Q1

REPORT INFORMATION
  Report Type: Spontaneous
  Country: US (occurrence: US)
  Receive Date: 20190108
  Receipt Date: 20190108
  Transmission Date: 20190417
  Serious: Yes (Hospitalization, Disabling, Other)
  Sender: FDA-Public Use
  Company Number: None

PATIENT
  Age: 68 Year
  Sex: Female

DRUGS (38)
  1. FUROSEMIDE. [Concomitant]
     Active Substance: FUROSEMIDE
  2. DIAZEPAM. [Concomitant]
     Active Substance: DIAZEPAM
  3. ACIPHEX [Concomitant]
     Active Substance: RABEPRAZOLE SODIUM
  4. ANTIVERT [Concomitant]
     Active Substance: MECLIZINE HYDROCHLORIDE
  5. PATANASE [Concomitant]
     Active Substance: OLOPATADINE HYDROCHLORIDE
  6. AZELASTINE HCL NASAL [Concomitant]
     Active Substance: AZELASTINE HYDROCHLORIDE
  7. L-METHAFOLATE [Concomitant]
  8. ZOLPIDEM [Concomitant]
     Active Substance: ZOLPIDEM\ZOLPIDEM TARTRATE
  9. COMPAZINE SUPPOSITORIES [Concomitant]
  10. OZEMPIC [Suspect]
     Active Substance: SEMAGLUTIDE
     Indication: OBESITY
     Dosage: ?          QUANTITY:10 ML MILLILITRE(S);OTHER ROUTE:INJECTIONS?
     Dates: start: 201812
  11. BABY ASPIRIN [Concomitant]
     Active Substance: ASPIRIN
  12. LIPITOR [Concomitant]
     Active Substance: ATORVASTATIN CALCIUM
  13. CARAFATE [Concomitant]
     Active Substance: SUCRALFATE
  14. PREDNISONE. [Concomitant]
     Active Substance: PREDNISONE
  15. XOPENEX [Concomitant]
     Active Substance: LEVALBUTEROL HYDROCHLORIDE
  16. ACYCLOVIR. [Concomitant]
     Active Substance: ACYCLOVIR
  17. SAM-E [Concomitant]
     Active Substance: ADEMETIONINE
  18. ALPRAZOLAM. [Concomitant]
     Active Substance: ALPRAZOLAM
  19. ALLUPURINOL [Concomitant]
  20. ATENOLOL. [Concomitant]
     Active Substance: ATENOLOL
  21. FIBER ONE [Concomitant]
  22. ZOFRAN [Concomitant]
     Active Substance: ONDANSETRON HYDROCHLORIDE
  23. VITAMIN D [Concomitant]
     Active Substance: CHOLECALCIFEROL
  24. AMLODIPINE BESYLATE. [Concomitant]
     Active Substance: AMLODIPINE BESYLATE
  25. SENNA [Concomitant]
     Active Substance: SENNA LEAF\SENNOSIDES\SENNOSIDES A AND B
  26. BUPROPION XL [Concomitant]
     Active Substance: BUPROPION
  27. FUROSEMIDE. [Concomitant]
     Active Substance: FUROSEMIDE
  28. SPIROLACTONE [Concomitant]
     Active Substance: SPIRONOLACTONE
  29. COQ10 [Concomitant]
     Active Substance: UBIDECARENONE
  30. POTASSIUM CAPSULES [Concomitant]
  31. ATORVASTATIN [Concomitant]
     Active Substance: ATORVASTATIN
  32. TRAZODONE [Concomitant]
     Active Substance: TRAZODONE HYDROCHLORIDE
  33. FLOVENT [Concomitant]
     Active Substance: FLUTICASONE PROPIONATE
  34. OZEMPIC [Suspect]
     Active Substance: SEMAGLUTIDE
     Indication: TYPE 2 DIABETES MELLITUS
     Dosage: ?          QUANTITY:10 ML MILLILITRE(S);OTHER ROUTE:INJECTIONS?
     Dates: start: 201812
  35. ATENOLOL. [Concomitant]
     Active Substance: ATENOLOL
  36. CYMBALTA [Concomitant]
     Active Substance: DULOXETINE HYDROCHLORIDE
  37. NITROS [Concomitant]
  38. ANNUSOL /CORTISONE SUPPOSITORIES [Concomitant]

REACTIONS (4)
  - Crying [None]
  - Abdominal pain upper [None]
  - Moaning [None]
  - Drug ineffective [None]

NARRATIVE: CASE EVENT DATE: 201812
